FAERS Safety Report 23216093 (Version 1)
Quarter: 2023Q4

REPORT INFORMATION
  Report Type: Spontaneous
  Country: US (occurrence: US)
  Receive Date: 20231122
  Receipt Date: 20231122
  Transmission Date: 20240109
  Serious: No
  Sender: FDA-Public Use
  Company Number: US-AUROBINDO-AUR-APL-2023-029482

PATIENT
  Age: 60 Year
  Sex: Female

DRUGS (1)
  1. MOXIFLOXACIN [Suspect]
     Active Substance: MOXIFLOXACIN
     Indication: Bacterial infection
     Dosage: 1 DROP, FOUR TIMES/DAY, BOTH EYES FOR 7 DAYS
     Dates: start: 20230320

REACTIONS (2)
  - Product packaging quantity issue [Unknown]
  - Product use issue [Unknown]
